FAERS Safety Report 7278496-X (Version None)
Quarter: 2011Q1

REPORT INFORMATION
  Report Type: 
  Country: None (occurrence: None)
  Receive Date: 20110207
  Receipt Date: 20110128
  Transmission Date: 20110831
  Serious: Yes (Other)
  Sender: FDA-Public Use
  Company Number: US-JNJFOC-20100806045

PATIENT
  Sex: Male

DRUGS (2)
  1. LEVAQUIN [Suspect]
     Indication: ILL-DEFINED DISORDER
     Route: 048
  2. LEVAQUIN [Suspect]
     Indication: INFECTION
     Route: 042

REACTIONS (5)
  - MENISCUS LESION [None]
  - TENDON RUPTURE [None]
  - SYNOVITIS [None]
  - TREATMENT NONCOMPLIANCE [None]
  - ARTHRALGIA [None]
